FAERS Safety Report 7531671-9 (Version None)
Quarter: 2011Q2

REPORT INFORMATION
  Report Type: 
  Country: None (occurrence: None)
  Receive Date: 20110608
  Receipt Date: 20110524
  Transmission Date: 20111010
  Serious: No
  Sender: FDA-Public Use
  Company Number: US-B.I. PHARMACEUTICALS,INC./RIDGEFIELD-2011-BP-08777BP

PATIENT
  Sex: Female

DRUGS (9)
  1. DOXEPIN [Concomitant]
  2. PRILOSEC OTC [Concomitant]
  3. LOSARTAIN/HCT [Concomitant]
  4. CLONIDINE [Concomitant]
  5. METOPROLOL SUCCINATE [Concomitant]
  6. SIMVASTATIN [Concomitant]
  7. ASPIRIN [Concomitant]
  8. AMLODIPINE [Concomitant]
  9. PRADAXA [Suspect]
     Indication: ATRIAL FIBRILLATION
     Dosage: 300 MG
     Route: 048
     Dates: start: 20110207

REACTIONS (2)
  - HEART RATE INCREASED [None]
  - ERYTHEMA [None]
